FAERS Safety Report 25757622 (Version 2)
Quarter: 2025Q4

REPORT INFORMATION
  Report Type: Report from Study
  Country: EU (occurrence: EU)
  Receive Date: 20250903
  Receipt Date: 20251001
  Transmission Date: 20260117
  Serious: Yes (Hospitalization)
  Sender: MYLAN
  Company Number: EU-AstrazenecaRSG-2309-D926QC00001(Prod)000001

PATIENT
  Age: 44 Year
  Sex: Female
  Weight: 68 kg

DRUGS (6)
  1. PACLITAXEL [Suspect]
     Active Substance: PACLITAXEL
     Indication: Non-small cell lung cancer
     Dosage: 80 MILLIGRAM/SQ. METER, Q3W (80 MG/M2, ONCE EVERY 3 WK)
     Dates: start: 20250710, end: 20250710
  2. PACLITAXEL [Suspect]
     Active Substance: PACLITAXEL
     Dosage: 80 MILLIGRAM/SQ. METER, Q3W (80 MILLIGRAM/SQ. METER (80 MG/M2, ONCE EVERY 3 WK))
     Dates: start: 20250612, end: 20250612
  3. CARBOPLATIN [Suspect]
     Active Substance: CARBOPLATIN
     Indication: Non-small cell lung cancer
     Dosage: UNK, Q3W (1.5 AUC, ONCE EVERY 3 WK)
     Dates: start: 20250616, end: 20250616
  4. CARBOPLATIN [Suspect]
     Active Substance: CARBOPLATIN
     Dosage: UNK, Q3W (1.5 AUC, ONCE EVERY 3 WK)
     Dates: start: 20250710, end: 20250710
  5. PEMBROLIZUMAB [Suspect]
     Active Substance: PEMBROLIZUMAB
     Indication: Non-small cell lung cancer
     Dosage: 200 MILLIGRAM, Q3W (200 MG, ONCE EVERY 3 WK)
     Dates: start: 20250612, end: 20250612
  6. PEMBROLIZUMAB [Suspect]
     Active Substance: PEMBROLIZUMAB
     Dosage: 200 MILLIGRAM, Q3W (200 MG, ONCE EVERY 3 WK)
     Dates: start: 20250710, end: 20250821

REACTIONS (1)
  - Hyperthermia [Recovered/Resolved]

NARRATIVE: CASE EVENT DATE: 20250801
